FAERS Safety Report 21462559 (Version 1)
Quarter: 2022Q4

REPORT INFORMATION
  Report Type: Other
  Country: DK (occurrence: DK)
  Receive Date: 20221016
  Receipt Date: 20221016
  Transmission Date: 20230113
  Serious: Yes (Other)
  Sender: FDA-Public Use
  Company Number: DK-CELLTRION INC.-2022DK016480

PATIENT

DRUGS (2)
  1. RITUXIMAB [Suspect]
     Active Substance: RITUXIMAB
     Indication: Demyelinating polyneuropathy
     Dosage: 375 MILLIGRAM PER SQUAREMETRE C1D1 ON 03/05 C1D2 ON 04/05 C2D1 ON 31/05 ; C2D2 ON 01/06 ; C3D1 ON 30
     Route: 065
  2. BACTRIM [Suspect]
     Active Substance: SULFAMETHOXAZOLE\TRIMETHOPRIM
     Indication: Infection prophylaxis
     Dosage: 1 DOSAGE FORM 1 TABLETSEVERY MONDAYS, WEDNESDAYS AND FRIDAYS
     Route: 065
     Dates: start: 20220504

REACTIONS (3)
  - Eosinophilia [Not Recovered/Not Resolved]
  - Rash maculo-papular [Recovering/Resolving]
  - Off label use [Unknown]

NARRATIVE: CASE EVENT DATE: 20220601
